FAERS Safety Report 20437475 (Version 2)
Quarter: 2022Q1

REPORT INFORMATION
  Report Type: Spontaneous
  Country: US (occurrence: US)
  Receive Date: 20220207
  Receipt Date: 20220322
  Transmission Date: 20220423
  Serious: No
  Sender: FDA-Public Use
  Company Number: US-AMGEN-USASP2022014032

PATIENT
  Age: 51 Year
  Sex: Female

DRUGS (1)
  1. AVSOLA [Suspect]
     Active Substance: INFLIXIMAB-AXXQ
     Indication: Colitis ulcerative
     Dosage: 600 MILLIGRAM, Q8WK
     Route: 065

REACTIONS (4)
  - Erythema [Recovered/Resolved]
  - Antibody test abnormal [Unknown]
  - Pruritus [Recovered/Resolved]
  - Rash [Recovered/Resolved]
